FAERS Safety Report 10378184 (Version 1)
Quarter: 2014Q1

REPORT INFORMATION
  Report Type: Spontaneous
  Country: US (occurrence: None)
  Receive Date: 20140306
  Receipt Date: 20140306
  Transmission Date: 20141002
  Serious: Yes (Hospitalization)
  Sender: FDA-Public Use
  Company Number: 163-21880-13012948

PATIENT
  Age: 73 Year
  Sex: Male
  Weight: 114.31 kg

DRUGS (1)
  1. REVLIMID (LENALIDOMIDE) (15 MILLIGRM, CAPSULES) [Suspect]
     Indication: PLASMA CELL MYELOMA
     Dosage: 21 IN 28 D PO
     Route: 048
     Dates: start: 20100924

REACTIONS (1)
  - Pneumonia [None]
